FAERS Safety Report 6211214-2 (Version None)
Quarter: 2009Q2

REPORT INFORMATION
  Report Type: 
  Country: None (occurrence: None)
  Receive Date: 20090602
  Receipt Date: 20090521
  Transmission Date: 20091009
  Serious: Yes (Other)
  Sender: FDA-Public Use
  Company Number: US-JNJFOC-20090402365

PATIENT
  Sex: Female
  Weight: 73.03 kg

DRUGS (13)
  1. REMICADE [Suspect]
     Route: 042
  2. REMICADE [Suspect]
     Indication: RHEUMATOID ARTHRITIS
     Dosage: 0-2-6 WEEKS THEN EVERY 8 WEEKS
     Route: 042
  3. PREDNISONE [Concomitant]
  4. PREDNISONE [Concomitant]
  5. ESTRADIOL [Concomitant]
     Route: 048
  6. RELAFEN [Concomitant]
  7. ZOLOFT [Concomitant]
     Route: 048
  8. MULTIPLE VITAMIN [Concomitant]
  9. CALCIUM [Concomitant]
  10. METHOTREXATE [Concomitant]
     Indication: MUSCULOSKELETAL PAIN
  11. DARVOCET-N 100 [Concomitant]
     Indication: PAIN
  12. COMBIVENT [Concomitant]
     Route: 055
  13. FOLIC ACID [Concomitant]
     Route: 048

REACTIONS (11)
  - BACK PAIN [None]
  - BLOOD PRESSURE INCREASED [None]
  - CHEST DISCOMFORT [None]
  - DIZZINESS [None]
  - ERYTHEMA [None]
  - FEELING HOT [None]
  - INFUSION RELATED REACTION [None]
  - MALAISE [None]
  - OXYGEN SATURATION DECREASED [None]
  - PAIN IN EXTREMITY [None]
  - SPEECH DISORDER [None]
